FAERS Safety Report 11802066 (Version 1)
Quarter: 2015Q4

REPORT INFORMATION
  Report Type: Spontaneous
  Country: US (occurrence: None)
  Receive Date: 20151203
  Receipt Date: 20151203
  Transmission Date: 20160305
  Serious: Yes (Other)
  Sender: FDA-Public Use
  Company Number: None

PATIENT
  Age: 68 Year
  Sex: Male
  Weight: 53.52 kg

DRUGS (1)
  1. DIGOXIN. [Suspect]
     Active Substance: DIGOXIN
     Route: 042
     Dates: start: 20150514, end: 20150514

REACTIONS (3)
  - Burning sensation [None]
  - Skin burning sensation [None]
  - Paraesthesia oral [None]

NARRATIVE: CASE EVENT DATE: 20150514
